FAERS Safety Report 4656215-0 (Version None)
Quarter: 2005Q2

REPORT INFORMATION
  Report Type: 
  Country: None (occurrence: None)
  Receive Date: 20050509
  Receipt Date: 20050224
  Transmission Date: 20051028
  Serious: No
  Sender: FDA-Public Use
  Company Number: US-GLAXOSMITHKLINE-A0547182A

PATIENT
  Age: 61 Year
  Sex: Female

DRUGS (7)
  1. AVANDAMET [Suspect]
     Route: 048
     Dates: start: 20030101
  2. HYZAAR [Concomitant]
  3. NORVASC [Concomitant]
  4. MOBIC [Concomitant]
  5. ZETIA [Concomitant]
  6. CRESTOR [Concomitant]
  7. COREG [Concomitant]

REACTIONS (4)
  - ABDOMINAL PAIN [None]
  - BLOOD GLUCOSE INCREASED [None]
  - NAUSEA [None]
  - VOMITING [None]
